FAERS Safety Report 18452283 (Version 1)
Quarter: 2020Q4

REPORT INFORMATION
  Report Type: Report from Study
  Country: US (occurrence: US)
  Receive Date: 20201102
  Receipt Date: 20201102
  Transmission Date: 20210114
  Serious: Yes (Hospitalization)
  Sender: FDA-Public Use
  Company Number: US-TEVA-2020-US-1843428

PATIENT
  Age: 42 Year
  Sex: Female

DRUGS (1)
  1. BOSENTAN TEVA [Suspect]
     Active Substance: BOSENTAN
     Indication: IDIOPATHIC PULMONARY FIBROSIS
     Dosage: 250 MILLIGRAM DAILY;
     Route: 048
     Dates: start: 20190624, end: 20201022

REACTIONS (5)
  - Acute kidney injury [Unknown]
  - Asthenia [Unknown]
  - Rectal haemorrhage [Unknown]
  - Pyrexia [Unknown]
  - Hepatic enzyme increased [Unknown]

NARRATIVE: CASE EVENT DATE: 20201022
